FAERS Safety Report 15077625 (Version 3)
Quarter: 2018Q3

REPORT INFORMATION
  Report Type: Report from Study
  Country: None (occurrence: JP)
  Receive Date: 20180627
  Receipt Date: 20180801
  Transmission Date: 20181010
  Serious: Yes (Hospitalization)
  Sender: FDA-Public Use
  Company Number: JP-ABBVIE-18P-087-2393723-00

PATIENT
  Age: 76 Year
  Sex: Female
  Weight: 43 kg

DRUGS (21)
  1. LEVOFLOXACIN. [Concomitant]
     Active Substance: LEVOFLOXACIN
     Indication: INFECTION PROPHYLAXIS
     Route: 048
     Dates: start: 20170828, end: 20171018
  2. CYTARABINE. [Suspect]
     Active Substance: CYTARABINE
     Indication: ACUTE MYELOID LEUKAEMIA
     Dosage: DAYS 1?10 OF 28 DAY CYCLE
     Route: 058
     Dates: start: 20170828, end: 20180614
  3. LEVOFLOXACIN. [Concomitant]
     Active Substance: LEVOFLOXACIN
     Route: 048
     Dates: start: 20171209, end: 20180104
  4. FEBURIC [Concomitant]
     Active Substance: FEBUXOSTAT
     Indication: PROPHYLAXIS
  5. LEVOFLOXACIN. [Concomitant]
     Active Substance: LEVOFLOXACIN
     Route: 048
     Dates: start: 20180203, end: 20180223
  6. LEVOFLOXACIN. [Concomitant]
     Active Substance: LEVOFLOXACIN
     Route: 048
     Dates: start: 20171103, end: 20171122
  7. LEVOFLOXACIN. [Concomitant]
     Active Substance: LEVOFLOXACIN
     Route: 048
     Dates: start: 20180308, end: 20180402
  8. SENNOSIDE [Concomitant]
     Active Substance: SENNOSIDES
     Indication: CONSTIPATION
     Route: 048
     Dates: start: 20170830
  9. VENETOCLAX. [Suspect]
     Active Substance: VENETOCLAX
     Dosage: DAYS 1?28 OF  A 28 DAY CYCLE
     Route: 048
     Dates: start: 20170831, end: 20180625
  10. FEBURIC [Concomitant]
     Active Substance: FEBUXOSTAT
     Indication: TUMOUR LYSIS SYNDROME
     Route: 048
     Dates: start: 20170822, end: 20170831
  11. VENETOCLAX. [Suspect]
     Active Substance: VENETOCLAX
     Dosage: DAYS 1?28 OF  A 28 DAY CYCLE
     Route: 048
     Dates: start: 20170830, end: 20170830
  12. VENETOCLAX. [Suspect]
     Active Substance: VENETOCLAX
     Dosage: DAYS 1?28 OF  A 28 DAY CYCLE
     Route: 048
     Dates: start: 20180723
  13. LEVOFLOXACIN. [Concomitant]
     Active Substance: LEVOFLOXACIN
     Route: 048
     Dates: start: 20180501, end: 20180525
  14. METHYCOBAL [Concomitant]
     Active Substance: METHYLCOBALAMIN
     Indication: VITAMIN B12 DEFICIENCY
     Route: 048
     Dates: start: 20180605
  15. VENETOCLAX. [Suspect]
     Active Substance: VENETOCLAX
     Indication: ACUTE MYELOID LEUKAEMIA
     Dosage: DAYS 1?28 OF  A 28 DAY CYCLE
     Route: 048
     Dates: start: 20170828, end: 20170828
  16. CYTARABINE. [Suspect]
     Active Substance: CYTARABINE
     Dosage: DAYS 1?10 OF 28 DAY CYCLE
     Route: 058
     Dates: start: 20180723
  17. FAMOTIDINE. [Concomitant]
     Active Substance: FAMOTIDINE
     Indication: PROPHYLAXIS AGAINST GASTROINTESTINAL ULCER
     Route: 048
     Dates: start: 201411
  18. DERMOSOL?G [Concomitant]
     Indication: DERMATITIS CONTACT
     Dosage: FINGERTIP UNIT
     Route: 003
     Dates: start: 20170828
  19. VENETOCLAX. [Suspect]
     Active Substance: VENETOCLAX
     Dosage: DAYS 1?28 OF  A 28 DAY CYCLE
     Route: 048
     Dates: start: 20170829, end: 20170829
  20. SOLDEM 6 [Concomitant]
     Indication: TUMOUR LYSIS SYNDROME
     Route: 042
     Dates: start: 20170822, end: 20170827
  21. SOLDEM 6 [Concomitant]
     Indication: PROPHYLAXIS
     Route: 042
     Dates: start: 20170828, end: 20170901

REACTIONS (2)
  - White blood cell count decreased [Recovered/Resolved]
  - Neutrophil count decreased [Recovered/Resolved]

NARRATIVE: CASE EVENT DATE: 20180619
